FAERS Safety Report 5205349-0 (Version None)
Quarter: 2007Q1

REPORT INFORMATION
  Report Type: 
  Country: None (occurrence: None)
  Receive Date: 20070110
  Receipt Date: 20070103
  Transmission Date: 20070707
  Serious: Yes (Other)
  Sender: FDA-Public Use
  Company Number: US-BRISTOL-MYERS SQUIBB COMPANY-13561949

PATIENT
  Age: 57 Year
  Sex: Male

DRUGS (11)
  1. ABATACEPT [Suspect]
     Indication: RHEUMATOID ARTHRITIS
     Route: 042
     Dates: start: 20010423
  2. METHOTREXATE [Suspect]
     Dates: start: 20050629
  3. PREDNISONE TAB [Concomitant]
     Dates: start: 20050616
  4. FOLIC ACID [Concomitant]
     Dates: start: 20050614
  5. TOPROL-XL [Concomitant]
     Dates: start: 20060719
  6. ALTACE [Concomitant]
     Dates: start: 20050615
  7. CALCIUM [Concomitant]
     Dates: start: 20060103
  8. PROTONIX [Concomitant]
     Dates: start: 20050616
  9. ACTONEL [Concomitant]
     Dates: start: 20060103
  10. VYTORIN [Concomitant]
     Dates: start: 20060516
  11. HYDROCHLOROTHIAZIDE [Concomitant]
     Dates: start: 20060719

REACTIONS (1)
  - BLADDER CANCER [None]
